FAERS Safety Report 20763472 (Version 3)
Quarter: 2022Q3

REPORT INFORMATION
  Report Type: Spontaneous
  Country: DE (occurrence: DE)
  Receive Date: 20220428
  Receipt Date: 20220629
  Transmission Date: 20221027
  Serious: Yes (Other)
  Sender: FDA-Public Use
  Company Number: DE-NOVARTISPH-NVSC2022DE095248

PATIENT
  Age: 60 Year
  Sex: Male

DRUGS (4)
  1. CARBOPLATIN [Suspect]
     Active Substance: CARBOPLATIN
     Indication: Non-small cell lung cancer
     Dosage: 720 MG, TIW
     Route: 042
     Dates: start: 20210428, end: 20210522
  2. YERVOY [Suspect]
     Active Substance: IPILIMUMAB
     Indication: Non-small cell lung cancer
     Dosage: 72 MG (6 WEEK)
     Route: 065
     Dates: start: 20210428, end: 20210630
  3. OPDIVO [Suspect]
     Active Substance: NIVOLUMAB
     Indication: Non-small cell lung cancer
     Dosage: 360 MG, TIW
     Route: 065
     Dates: start: 20210428, end: 20210630
  4. PANTOPRAZOLE [Concomitant]
     Active Substance: PANTOPRAZOLE
     Indication: Product used for unknown indication
     Dosage: UNK
     Route: 065
     Dates: start: 20200511, end: 20210712

REACTIONS (1)
  - Immune-mediated hyperthyroidism [Recovered/Resolved]

NARRATIVE: CASE EVENT DATE: 20210630
